FAERS Safety Report 4794994-2 (Version None)
Quarter: 2005Q4

REPORT INFORMATION
  Report Type: 
  Country: None (occurrence: None)
  Receive Date: 20051007
  Receipt Date: 20051007
  Transmission Date: 20060501
  Serious: Yes (Other)
  Sender: FDA-Public Use
  Company Number: None

PATIENT
  Age: 34 Year
  Sex: Female

DRUGS (2)
  1. COPPERTONE SPECTRA #30 (CANADA) LOTION [Suspect]
     Indication: PROPHYLAXIS
     Dosage: Q1 HRS TOPICAL
     Route: 061
  2. COPPERTONE SPECTRA #30 (CANADA) LOTION [Suspect]
     Indication: SUNBURN
     Dosage: Q1 HRS TOPICAL
     Route: 061

REACTIONS (3)
  - APPLICATION SITE REACTION [None]
  - BURNS SECOND DEGREE [None]
  - DERMOGRAPHISM [None]
